FAERS Safety Report 11239796 (Version 1)
Quarter: 2015Q3

REPORT INFORMATION
  Report Type: Other
  Country: GB (occurrence: GB)
  Receive Date: 20150706
  Receipt Date: 20150706
  Transmission Date: 20151125
  Serious: No
  Sender: FDA-Public Use
  Company Number: GB-LUPIN PHARMACEUTICALS INC.-2015-01557

PATIENT
  Age: 42 Year
  Sex: Male

DRUGS (1)
  1. ESCITALOPRAM [Suspect]
     Active Substance: ESCITALOPRAM OXALATE
     Indication: PRODUCT USED FOR UNKNOWN INDICATION
     Dosage: 10-20 MG
     Route: 065

REACTIONS (8)
  - Decreased appetite [Unknown]
  - Anxiety [Unknown]
  - Aggression [Unknown]
  - Agitation [Unknown]
  - Alcohol abuse [Unknown]
  - Impulsive behaviour [Unknown]
  - Paranoia [Unknown]
  - Insomnia [Unknown]
